FAERS Safety Report 7384671-6 (Version None)
Quarter: 2011Q1

REPORT INFORMATION
  Report Type: 
  Country: None (occurrence: None)
  Receive Date: 20110330
  Receipt Date: 20110316
  Transmission Date: 20110831
  Serious: Yes (Other)
  Sender: FDA-Public Use
  Company Number: PHHY2011US21704

PATIENT
  Sex: Female

DRUGS (8)
  1. PLAVIX [Concomitant]
     Dosage: 75 MG, UNK
  2. FUROSEMIDE [Concomitant]
     Dosage: 20 MG, BID
  3. LEVOTHYROXINE SODIUM [Concomitant]
     Dosage: 0.175 MG, UNK
  4. SERTRALINE HYDROCHLORIDE [Concomitant]
     Dosage: 1 OR 1+1/2 TAB PER DAY
     Route: 048
  5. LISINOPRIL [Concomitant]
  6. GLEEVEC [Suspect]
     Dosage: 400 MG, QD
  7. LIPITOR [Concomitant]
     Dosage: 20 MG, ONCE/SINGLE
  8. CARVEDILOL [Concomitant]
     Dosage: 12.5 MG, BID 1 AM AND 1 PM

REACTIONS (7)
  - SWELLING [None]
  - MITRAL VALVE DISEASE [None]
  - DEHYDRATION [None]
  - ALOPECIA [None]
  - MUSCLE SPASMS [None]
  - RENAL FAILURE [None]
  - DIARRHOEA [None]
